FAERS Safety Report 8761104 (Version 2)
Quarter: 2012Q4

REPORT INFORMATION
  Report Type: 
  Country: US (occurrence: US)
  Receive Date: 20120830
  Receipt Date: 20121011
  Transmission Date: 20130627
  Serious: Yes (Hospitalization, Other)
  Sender: FDA-Public Use
  Company Number: US-ASTRAZENECA-2012SE60841

PATIENT
  Age: 64 Year
  Sex: Female

DRUGS (4)
  1. NEXIUM [Suspect]
     Route: 048
  2. PROTONIX [Concomitant]
  3. XANAX [Concomitant]
  4. ZOLAR [Concomitant]

REACTIONS (6)
  - Pulmonary embolism [Unknown]
  - Neoplasm [Unknown]
  - Diabetes mellitus [Unknown]
  - Asthma [Unknown]
  - Lung disorder [Unknown]
  - Malaise [Unknown]
